FAERS Safety Report 7250569-7 (Version None)
Quarter: 2011Q1

REPORT INFORMATION
  Report Type: 
  Country: None (occurrence: None)
  Receive Date: 20110128
  Receipt Date: 20110127
  Transmission Date: 20110831
  Serious: Yes (Hospitalization)
  Sender: FDA-Public Use
  Company Number: IT-ROCHE-754848

PATIENT
  Sex: Female

DRUGS (9)
  1. RIVOTRIL [Suspect]
     Route: 048
  2. NORTRIPTYLINE HCL [Suspect]
     Indication: DEPRESSION
     Dosage: FREQUENCY: DAILY
     Route: 048
     Dates: start: 20090101, end: 20100406
  3. VASERETIC [Suspect]
     Indication: HYPERTENSION
     Route: 048
     Dates: start: 20090101
  4. NORTRIPTYLINE HCL [Suspect]
     Route: 048
  5. SEROQUEL [Suspect]
     Dosage: FREQUENCY: DAILY
     Route: 048
     Dates: start: 20090101
  6. MIRTAZAPINA [Suspect]
     Indication: DEPRESSION
     Dosage: FRQUENCY: DAILY
     Route: 048
     Dates: start: 20090101
  7. GABAPENTINA [Suspect]
     Indication: EPILEPSY
     Dosage: FREQUENCY: DAILY
     Route: 048
     Dates: start: 20090101
  8. LACIPIL [Suspect]
     Indication: HYPERTENSION
     Dosage: FREQUENCY: DAILY
     Route: 048
     Dates: start: 20090101
  9. RIVOTRIL [Suspect]
     Indication: EPILEPSY
     Dosage: FREQUENCY: DAILY
     Route: 048
     Dates: start: 20090101, end: 20100406

REACTIONS (2)
  - BRADYPHRENIA [None]
  - SOPOR [None]
